FAERS Safety Report 10028348 (Version 1)
Quarter: 2014Q1

REPORT INFORMATION
  Report Type: Spontaneous
  Country: KR (occurrence: None)
  Receive Date: 20140319
  Receipt Date: 20140319
  Transmission Date: 20141002
  Serious: Yes (Hospitalization)
  Sender: FDA-Public Use
  Company Number: 2014030047

PATIENT
  Age: 70 Year
  Sex: Female

DRUGS (4)
  1. POLYETHYLENE GLYCOL [Suspect]
     Indication: COLONOSCOPY
  2. AMLODIPINE (AMLODIPINE) [Concomitant]
  3. IBANDRONIC ACID (IBANDRONIC ACID) [Concomitant]
  4. CLOPIDOGREL (CLOPIDOGREL) [Concomitant]

REACTIONS (5)
  - Grand mal convulsion [None]
  - Blood pressure increased [None]
  - Blood potassium decreased [None]
  - Blood glucose increased [None]
  - Hyponatraemia [None]
